FAERS Safety Report 14693254 (Version 4)
Quarter: 2018Q2

REPORT INFORMATION
  Report Type: Report from Study
  Country: DE (occurrence: DE)
  Receive Date: 20180329
  Receipt Date: 20180622
  Transmission Date: 20180711
  Serious: Yes (Hospitalization, Disabling, Other)
  Sender: FDA-Public Use
  Company Number: DE-ACTELION-A-CH2018-169696

PATIENT
  Age: 71 Year
  Sex: Female
  Weight: 79.8 kg

DRUGS (17)
  1. ALDACTONE [Concomitant]
     Active Substance: SPIRONOLACTONE
     Indication: OEDEMA PERIPHERAL
     Dosage: 25 MG, QD
     Dates: start: 200804
  2. GLUCOPHAGE [Concomitant]
     Active Substance: METFORMIN HYDROCHLORIDE
     Indication: DIABETES MELLITUS
     Dosage: 1000 MG, BID
     Dates: start: 199504
  3. UPTRAVI [Suspect]
     Active Substance: SELEXIPAG
     Indication: PULMONARY ARTERIAL HYPERTENSION
     Dosage: 1600 ?G, BID
     Route: 048
     Dates: start: 20180315
  4. MARCUMAR [Concomitant]
     Active Substance: PHENPROCOUMON
  5. SELEXIPAG [Suspect]
     Active Substance: SELEXIPAG
     Indication: PULMONARY ARTERIAL HYPERTENSION
     Dosage: UNK ML/HR, SINGLE
     Route: 042
     Dates: start: 20180315, end: 20180315
  6. SELEXIPAG [Suspect]
     Active Substance: SELEXIPAG
     Dosage: UNK ML/HR, SINGLE
     Route: 042
     Dates: start: 20180314, end: 20180314
  7. SELEXIPAG [Suspect]
     Active Substance: SELEXIPAG
     Dosage: UNK ML/HR, SINGLE
     Route: 042
     Dates: start: 20180314, end: 20180314
  8. EUTHYROX [Concomitant]
     Active Substance: LEVOTHYROXINE SODIUM
     Indication: HYPOTHYROIDISM
     Dosage: 75 ?G, QD
     Dates: start: 199501
  9. SELEXIPAG [Suspect]
     Active Substance: SELEXIPAG
     Dosage: UNK ML/HR, SINGLE
     Route: 042
     Dates: start: 20180314, end: 20180314
  10. REVATIO [Concomitant]
     Active Substance: SILDENAFIL CITRATE
     Indication: PULMONARY ARTERIAL HYPERTENSION
     Dosage: 40 MG, TID
     Dates: start: 200805
  11. VALSARTAN. [Concomitant]
     Active Substance: VALSARTAN
     Indication: HYPERTENSION
     Dosage: 80/12.5 MG DAILY
     Dates: start: 1992
  12. SELEXIPAG [Suspect]
     Active Substance: SELEXIPAG
     Indication: PULMONARY ARTERIAL HYPERTENSION
     Dosage: UNK ML/HR, SINGLE
     Route: 042
     Dates: start: 20180315, end: 20180315
  13. SELEXIPAG [Suspect]
     Active Substance: SELEXIPAG
     Dosage: UNK ML/HR, SINGLE
     Route: 042
     Dates: start: 20180314, end: 20180314
  14. VOLIBRIS [Concomitant]
     Active Substance: AMBRISENTAN
     Indication: PULMONARY ARTERIAL HYPERTENSION
     Dosage: 10 MG, QD
     Dates: start: 200804
  15. NOVONORM [Concomitant]
     Active Substance: REPAGLINIDE
     Indication: DIABETES MELLITUS
     Dosage: 2 MG, TID
     Dates: start: 199504
  16. UPTRAVI [Suspect]
     Active Substance: SELEXIPAG
     Dosage: 1600 ?G, BID
     Route: 048
     Dates: start: 201111, end: 20180313
  17. METHOTREXAT [Concomitant]
     Active Substance: METHOTREXATE
     Dosage: 20 MG, TWICE PER WEEK
     Dates: start: 201511

REACTIONS (5)
  - Injection [Unknown]
  - Macular detachment [Recovering/Resolving]
  - Rhegmatogenous retinal detachment [Recovering/Resolving]
  - Blindness [Recovering/Resolving]
  - Eye operation [Unknown]

NARRATIVE: CASE EVENT DATE: 20180316
